FAERS Safety Report 6173860-4 (Version None)
Quarter: 2009Q2

REPORT INFORMATION
  Report Type: 
  Country: None (occurrence: None)
  Receive Date: 20090430
  Receipt Date: 20090422
  Transmission Date: 20091009
  Serious: Yes (Hospitalization)
  Sender: FDA-Public Use
  Company Number: FR-ELI_LILLY_AND_COMPANY-FR200904004633

PATIENT
  Sex: Female

DRUGS (6)
  1. ZYPREXA [Suspect]
     Dosage: 5 MG, DAILY (1/D)
     Route: 048
     Dates: start: 20090101, end: 20090221
  2. BREXIN /00500404/ [Concomitant]
     Route: 048
     Dates: end: 20090221
  3. RISPERDAL [Concomitant]
     Route: 048
     Dates: end: 20090221
  4. MEPRONIZINE [Concomitant]
     Route: 048
     Dates: end: 20090221
  5. METHOCARBAMOL [Concomitant]
     Dates: end: 20090221
  6. TANAKAN [Concomitant]
     Dates: end: 20090221

REACTIONS (3)
  - CHOLESTASIS [None]
  - HYPOTHERMIA [None]
  - PANCREATITIS ACUTE [None]
